FAERS Safety Report 15081861 (Version 1)
Quarter: 2018Q2

REPORT INFORMATION
  Report Type: Spontaneous
  Country: IR (occurrence: IR)
  Receive Date: 20180628
  Receipt Date: 20180628
  Transmission Date: 20180711
  Serious: Yes (Other)
  Sender: FDA-Public Use
  Company Number: IR-RICON PHARMA, LLC-RIC201806-000619

PATIENT
  Age: 32 Year
  Sex: Female

DRUGS (5)
  1. BETAMETHASONE VALERATE. [Suspect]
     Active Substance: BETAMETHASONE VALERATE
     Indication: MATERNAL THERAPY TO ENHANCE FOETAL LUNG MATURITY
  2. CALCIUM [Concomitant]
     Active Substance: CALCIUM
     Indication: SUPPLEMENTATION THERAPY
  3. CINNOPAR [Concomitant]
     Route: 058
  4. PREDNISOLONE. [Suspect]
     Active Substance: PREDNISOLONE
     Indication: ABORTION SPONTANEOUS
     Route: 048
  5. VITAMIN D [Concomitant]
     Active Substance: CHOLECALCIFEROL

REACTIONS (3)
  - Femoral neck fracture [Recovering/Resolving]
  - Osteoporosis [Recovering/Resolving]
  - Exposure during pregnancy [Unknown]
